FAERS Safety Report 21903772 (Version 2)
Quarter: 2023Q1

REPORT INFORMATION
  Report Type: Report from Study
  Country: CA (occurrence: CA)
  Receive Date: 20230124
  Receipt Date: 20230202
  Transmission Date: 20230418
  Serious: Yes (Other)
  Sender: FDA-Public Use
  Company Number: CA-JNJFOC-20221017677

PATIENT
  Sex: Female
  Weight: 53 kg

DRUGS (3)
  1. REMICADE [Suspect]
     Active Substance: INFLIXIMAB
     Indication: Crohn^s disease
     Route: 042
     Dates: start: 20220127
  2. REMICADE [Suspect]
     Active Substance: INFLIXIMAB
     Dosage: LAT DOSE ON 22-SEP-2022. ALSO REQUESTING STAT DOSE OF REMICADE AT 3-WEEK MARK AFTER LAST INFUSION, T
     Route: 042
  3. REMICADE [Suspect]
     Active Substance: INFLIXIMAB
     Dosage: STAT DOSE WAS REQUESTED.
     Route: 042

REACTIONS (3)
  - Crohn^s disease [Not Recovered/Not Resolved]
  - Drug level decreased [Unknown]
  - Therapeutic product effect decreased [Unknown]
